FAERS Safety Report 5124225-5 (Version None)
Quarter: 2006Q4

REPORT INFORMATION
  Report Type: 
  Country: None (occurrence: None)
  Receive Date: 20061010
  Receipt Date: 20060803
  Transmission Date: 20070319
  Serious: Yes (Other)
  Sender: FDA-Public Use
  Company Number: US-BRISTOL-MYERS SQUIBB COMPANY-13465240

PATIENT
  Age: 75 Year
  Sex: Male

DRUGS (6)
  1. KENALOG-40 [Suspect]
     Indication: MACULAR OEDEMA
     Route: 031
     Dates: start: 20060512, end: 20060512
  2. QUINIDINE SULFATE [Concomitant]
  3. LIPITOR [Concomitant]
  4. ASPIRIN [Concomitant]
  5. ECONOPRED [Concomitant]
     Route: 047
  6. NEVANAC [Concomitant]
     Route: 047

REACTIONS (1)
  - EYE INFLAMMATION [None]
